FAERS Safety Report 10243090 (Version 3)
Quarter: 2014Q3

REPORT INFORMATION
  Report Type: Report from Study
  Country: JP (occurrence: JP)
  Receive Date: 20140618
  Receipt Date: 20140912
  Transmission Date: 20150326
  Serious: Yes (Death, Other)
  Sender: FDA-Public Use
  Company Number: JP-AMGEN-JPNCT2014045102

PATIENT
  Age: 79 Year
  Sex: Male
  Weight: 62 kg

DRUGS (16)
  1. NESP [Suspect]
     Active Substance: DARBEPOETIN ALFA
     Dosage: 40 MUG, QD
     Route: 058
     Dates: start: 20130826, end: 20130826
  2. NESP [Suspect]
     Active Substance: DARBEPOETIN ALFA
     Dosage: 30 MUG, QD
     Route: 058
     Dates: start: 20120628, end: 20120628
  3. TENORMIN [Concomitant]
     Active Substance: ATENOLOL
     Dosage: UNK
     Route: 048
  4. BAYASPIRIN [Concomitant]
     Active Substance: ASPIRIN
     Dosage: UNK
     Route: 048
  5. NESP [Suspect]
     Active Substance: DARBEPOETIN ALFA
     Dosage: 30 MUG, 1X/4WEEKS
     Route: 058
     Dates: start: 20120731, end: 20130730
  6. NESP [Suspect]
     Active Substance: DARBEPOETIN ALFA
     Dosage: 40 MUG, QD
     Route: 058
     Dates: start: 20130930, end: 20130930
  7. KALIMATE [Concomitant]
     Active Substance: POLYSTYRENE SULFONIC ACID
     Dosage: UNK
     Route: 048
  8. NESP [Suspect]
     Active Substance: DARBEPOETIN ALFA
     Dosage: 30 MUG, 1X/2WEEKS
     Route: 058
     Dates: start: 20110415, end: 20111111
  9. PANALDINE [Concomitant]
     Active Substance: TICLOPIDINE HYDROCHLORIDE
     Dosage: UNK
     Route: 048
  10. NESP [Suspect]
     Active Substance: DARBEPOETIN ALFA
     Dosage: 30 MUG, QD
     Route: 058
     Dates: start: 20120518, end: 20120518
  11. ADALAT [Concomitant]
     Active Substance: NIFEDIPINE
     Dosage: UNK
     Route: 048
  12. RENIVACE [Concomitant]
     Active Substance: ENALAPRIL
     Dosage: UNK
     Route: 048
  13. NESP [Suspect]
     Active Substance: DARBEPOETIN ALFA
     Indication: NEPHROGENIC ANAEMIA
     Dosage: 40 MUG, QD
     Route: 058
     Dates: start: 20110415, end: 20131022
  14. NESP [Suspect]
     Active Substance: DARBEPOETIN ALFA
     Dosage: 30 MUG, 1X/2WEEKS
     Route: 058
     Dates: start: 20120127, end: 20120420
  15. NESP [Suspect]
     Active Substance: DARBEPOETIN ALFA
     Dosage: 40 MUG, QD
     Route: 058
     Dates: start: 20131022, end: 20131022
  16. AST 120 [Concomitant]
     Indication: GLOMERULONEPHRITIS CHRONIC
     Dosage: UNK
     Route: 048

REACTIONS (4)
  - Dementia [Not Recovered/Not Resolved]
  - Hypotension [Fatal]
  - Loss of consciousness [Fatal]
  - Renal impairment [Fatal]

NARRATIVE: CASE EVENT DATE: 201309
